FAERS Safety Report 6662393-4 (Version None)
Quarter: 2010Q1

REPORT INFORMATION
  Report Type: 
  Country: None (occurrence: None)
  Receive Date: 20100331
  Receipt Date: 20100318
  Transmission Date: 20100710
  Serious: Yes (Other)
  Sender: FDA-Public Use
  Company Number: US-ELI_LILLY_AND_COMPANY-US200911006176

PATIENT
  Sex: Male

DRUGS (5)
  1. ZYPREXA [Suspect]
     Indication: ANXIETY
     Dosage: 10 MG, UNK
     Route: 048
  2. WELLBUTRIN XL [Concomitant]
  3. LAMICTAL CD [Concomitant]
  4. CLONAZEPAM [Concomitant]
  5. NEURONTIN [Concomitant]

REACTIONS (1)
  - CEREBROVASCULAR ACCIDENT [None]
